FAERS Safety Report 12633088 (Version 2)
Quarter: 2016Q3

REPORT INFORMATION
  Report Type: Spontaneous
  Country: US (occurrence: US)
  Receive Date: 20160808
  Receipt Date: 20160808
  Transmission Date: 20161109
  Serious: No
  Sender: FDA-Public Use
  Company Number: US-BEH-2016058407

PATIENT
  Age: 20 Year
  Sex: Female
  Weight: 66 kg

DRUGS (12)
  1. DIPHENHYDRAMINE. [Concomitant]
     Active Substance: DIPHENHYDRAMINE
  2. SINGULAIR [Concomitant]
     Active Substance: MONTELUKAST SODIUM
  3. HIZENTRA [Suspect]
     Active Substance: HUMAN IMMUNOGLOBULIN G
  4. HIZENTRA [Suspect]
     Active Substance: HUMAN IMMUNOGLOBULIN G
     Route: 058
     Dates: start: 20150923
  5. NASONEX [Concomitant]
     Active Substance: MOMETASONE FUROATE
  6. HIZENTRA [Suspect]
     Active Substance: HUMAN IMMUNOGLOBULIN G
     Indication: IMMUNODEFICIENCY
  7. EPI-PEN AUTOINJECTOR [Concomitant]
  8. FLOVENT HFA [Concomitant]
     Active Substance: FLUTICASONE PROPIONATE
     Dosage: INHALER
  9. LIDOCAINE. [Concomitant]
     Active Substance: LIDOCAINE
  10. ACETAMINOPHEN. [Concomitant]
     Active Substance: ACETAMINOPHEN
  11. ALBUTEROL SULF HFA [Concomitant]
  12. RELION VENTOLIN HFA [Concomitant]

REACTIONS (2)
  - Administration site extravasation [Unknown]
  - Cystitis [Unknown]

NARRATIVE: CASE EVENT DATE: 20151205
